FAERS Safety Report 4459801-6 (Version None)
Quarter: 2004Q3

REPORT INFORMATION
  Report Type: 
  Country: None (occurrence: None)
  Receive Date: 20040923
  Receipt Date: 20040913
  Transmission Date: 20050211
  Serious: Yes (Death, Hospitalization, Other)
  Sender: FDA-Public Use
  Company Number: US-JNJFOC-20040903710

PATIENT
  Age: 22 Month
  Sex: Male

DRUGS (2)
  1. EXTRA STRENGTH TYLENOL PM (ACETAMINOPHEN/DIPHENHYDRAMINE HCL) UNSPECIF [Suspect]
     Indication: ACCIDENTAL EXPOSURE
  2. IRON (IRON) [Suspect]
     Indication: ACCIDENTAL EXPOSURE

REACTIONS (20)
  - ABDOMINAL DISTENSION [None]
  - ACCIDENTAL EXPOSURE [None]
  - ACTIVATED PARTIAL THROMBOPLASTIN TIME PROLONGED [None]
  - ALANINE AMINOTRANSFERASE INCREASED [None]
  - ASPARTATE AMINOTRANSFERASE INCREASED [None]
  - BLOOD AMYLASE INCREASED [None]
  - BLOOD BICARBONATE DECREASED [None]
  - BLOOD IRON INCREASED [None]
  - BLOOD PH DECREASED [None]
  - CARDIO-RESPIRATORY ARREST [None]
  - COMA [None]
  - CONVULSION [None]
  - DRUG LEVEL ABOVE THERAPEUTIC [None]
  - HAEMATOCRIT DECREASED [None]
  - HYPOTENSION [None]
  - MULTI-ORGAN FAILURE [None]
  - PCO2 DECREASED [None]
  - PO2 DECREASED [None]
  - PROTHROMBIN TIME PROLONGED [None]
  - VOMITING [None]
